FAERS Safety Report 6239221-4 (Version None)
Quarter: 2009Q2

REPORT INFORMATION
  Report Type: 
  Country: None (occurrence: None)
  Receive Date: 20090622
  Receipt Date: 20090610
  Transmission Date: 20091009
  Serious: Yes (Life-Threatening, Hospitalization, Other)
  Sender: FDA-Public Use
  Company Number: JP-PFIZER INC-2009227094

PATIENT
  Age: 72 Year

DRUGS (12)
  1. AZULFIDINE [Suspect]
     Indication: RHEUMATOID ARTHRITIS
     Dosage: 500 MG, 2X/DAY
     Route: 048
  2. PREDNISOLONE [Suspect]
     Indication: RHEUMATOID ARTHRITIS
     Dosage: 5 MG, 1X/DAY
     Route: 048
  3. RIMATIL [Suspect]
     Indication: RHEUMATOID ARTHRITIS
     Dosage: 100 MG, 1X/DAY
     Route: 048
     Dates: start: 20090121, end: 20090329
  4. CLINORIL [Concomitant]
     Dosage: UNK
     Route: 048
  5. ALBUMIN TANNATE [Concomitant]
     Indication: DIARRHOEA
     Dosage: UNK
     Route: 048
     Dates: start: 20080801
  6. TAKEPRON [Concomitant]
     Indication: REFLUX OESOPHAGITIS
     Dosage: UNK
     Route: 048
  7. CLARITHROMYCIN [Concomitant]
     Indication: BRONCHITIS CHRONIC
     Route: 048
     Dates: start: 20090121, end: 20090403
  8. ARTIST [Concomitant]
     Indication: CARDIAC FAILURE CHRONIC
     Dosage: UNK
     Route: 048
  9. ALDACTONE [Concomitant]
     Indication: CARDIAC FAILURE CHRONIC
     Dosage: UNK
     Route: 048
  10. GASCON [Concomitant]
     Route: 048
     Dates: start: 20090318, end: 20090403
  11. BLOPRESS [Concomitant]
     Indication: HYPERTENSION
     Dosage: UNK
     Route: 048
  12. SIGMART [Concomitant]
     Indication: ANGINA PECTORIS
     Dosage: UNK
     Route: 048

REACTIONS (3)
  - BRONCHOPULMONARY ASPERGILLOSIS [None]
  - DIARRHOEA [None]
  - IMMOBILE [None]
